FAERS Safety Report 6750312-1 (Version None)
Quarter: 2010Q2

REPORT INFORMATION
  Report Type: 
  Country: None (occurrence: None)
  Receive Date: 20100601
  Receipt Date: 20100520
  Transmission Date: 20101027
  Serious: Yes (Death, Hospitalization)
  Sender: FDA-Public Use
  Company Number: MX-PFIZER INC-2010053220

PATIENT
  Age: 76 Year
  Sex: Male
  Weight: 65 kg

DRUGS (13)
  1. BLINDED *NO SUBJECT DRUG [Suspect]
     Indication: CARDIAC FAILURE CONGESTIVE
     Dosage: UNK MG, 1X/DAY
     Route: 048
     Dates: start: 20090605, end: 20100328
  2. BLINDED *PLACEBO [Suspect]
     Indication: CARDIAC FAILURE CONGESTIVE
     Dosage: UNK MG, 1X/DAY
     Route: 048
     Dates: start: 20090605, end: 20100328
  3. BLINDED EPLERENONE [Suspect]
     Indication: CARDIAC FAILURE CONGESTIVE
     Dosage: UNK MG, 1X/DAY
     Route: 048
     Dates: start: 20090605, end: 20100328
  4. BECLOMETASONE [Concomitant]
     Dosage: UNK
     Route: 045
     Dates: start: 20080701, end: 20100428
  5. DIGOXIN [Concomitant]
     Dosage: 0.25 MG, UNK
     Route: 048
     Dates: start: 20081201, end: 20100428
  6. METFORMIN [Concomitant]
     Dosage: 850 MG, UNK
     Dates: start: 20080701, end: 20100428
  7. OMEPRAZOLE [Concomitant]
     Dosage: 20 MG, UNK
     Route: 048
     Dates: start: 20080601, end: 20100428
  8. ISOSORBIDE [Concomitant]
     Dosage: 10 MG, UNK
     Route: 048
     Dates: start: 20080601, end: 20100428
  9. CHLORTALIDONE [Concomitant]
     Dosage: 50 MG, UNK
     Route: 048
     Dates: start: 20091221, end: 20100109
  10. FUROSEMIDE [Concomitant]
     Dosage: 40 MG, UNK
     Route: 048
     Dates: start: 20100105, end: 20100428
  11. SALBUTAMOL W/IPRATROPIUM [Concomitant]
     Dosage: UNK
     Route: 045
     Dates: start: 20100105, end: 20100428
  12. LOSARTAN [Concomitant]
     Dosage: 50 MG, UNK
     Route: 048
     Dates: start: 20080601, end: 20100428
  13. BEZAFIBRATE [Concomitant]
     Dosage: 200 MG, UNK
     Route: 048
     Dates: start: 20091221, end: 20100428

REACTIONS (1)
  - PANCREATITIS ACUTE [None]
